FAERS Safety Report 6855766-8 (Version None)
Quarter: 2010Q3

REPORT INFORMATION
  Report Type: 
  Country: None (occurrence: None)
  Receive Date: 20100719
  Receipt Date: 20100706
  Transmission Date: 20110219
  Serious: Yes (Hospitalization)
  Sender: FDA-Public Use
  Company Number: US-TYCO HEALTHCARE/MALLINCKRODT-T201001574

PATIENT
  Age: 66 Year
  Sex: Female

DRUGS (4)
  1. PAMELOR [Suspect]
     Dosage: UNK
  2. AVENTYL HYDROCHLORIDE [Suspect]
     Dosage: UNK
  3. ALL OTHER THERAPEUTIC PRODUCTS [Suspect]
     Dosage: UNK
  4. AVONEX                             /05982701/ [Concomitant]
     Indication: MULTIPLE SCLEROSIS
     Dosage: 30 ?G, WEEKLY
     Route: 030

REACTIONS (2)
  - MULTIPLE DRUG OVERDOSE [None]
  - SUICIDE ATTEMPT [None]
